FAERS Safety Report 24371678 (Version 1)
Quarter: 2024Q3

REPORT INFORMATION
  Report Type: Spontaneous
  Country: US (occurrence: None)
  Receive Date: 20240926
  Receipt Date: 20240926
  Transmission Date: 20241016
  Serious: Yes (Death)
  Sender: Public
  Company Number: None

PATIENT
  Age: 52 Year
  Sex: Female

DRUGS (5)
  1. MULPLETA [Suspect]
     Active Substance: LUSUTROMBOPAG
     Dosage: FREQUENCY : DAILY;?
     Route: 048
     Dates: start: 202011
  2. CAPECITABINE [Concomitant]
  3. UDENYCA [Suspect]
     Active Substance: PEGFILGRASTIM-CBQV
  4. ZIEXTENZO [Suspect]
     Active Substance: PEGFILGRASTIM-BMEZ
  5. LONSURF [Concomitant]

REACTIONS (1)
  - Death [None]

NARRATIVE: CASE EVENT DATE: 20240822
